FAERS Safety Report 24128388 (Version 1)
Quarter: 2024Q3

REPORT INFORMATION
  Report Type: Spontaneous
  Country: AT (occurrence: None)
  Receive Date: 20240723
  Receipt Date: 20240723
  Transmission Date: 20241017
  Serious: Yes (Other)
  Sender: ASTRAZENECA
  Company Number: 2024A161709

PATIENT
  Age: 50 Year
  Sex: Male

DRUGS (2)
  1. DAPAGLIFLOZIN [Suspect]
     Active Substance: DAPAGLIFLOZIN
     Indication: Hypocitraturia
     Dosage: 10 MG/DAY
     Route: 048
     Dates: start: 202208, end: 202209
  2. DAPAGLIFLOZIN [Suspect]
     Active Substance: DAPAGLIFLOZIN
     Indication: Hypocitraturia
     Dosage: 10 MG/DAY
     Route: 048

REACTIONS (2)
  - Citric acid urine increased [Unknown]
  - Off label use [Unknown]
